FAERS Safety Report 4534717-5 (Version None)
Quarter: 2004Q4

REPORT INFORMATION
  Report Type: 
  Country: None (occurrence: None)
  Receive Date: 20041222
  Receipt Date: 20031125
  Transmission Date: 20050328
  Serious: No
  Sender: FDA-Public Use
  Company Number: US-BRISTOL-MYERS SQUIBB COMPANY-12448304

PATIENT
  Age: 40 Year
  Sex: Male

DRUGS (4)
  1. PRAVACHOL [Suspect]
  2. GLUCOPHAGE [Concomitant]
  3. AVANDIA [Concomitant]
  4. AMARYL [Concomitant]
     Dosage: 1 MG EVERY OTHER DAY

REACTIONS (1)
  - PRURITUS [None]
